FAERS Safety Report 9827058 (Version 2)
Quarter: 2014Q1

REPORT INFORMATION
  Report Type: Spontaneous
  Country: US (occurrence: None)
  Receive Date: 20131112
  Receipt Date: 20140214
  Transmission Date: 20141002
  Serious: No
  Sender: FDA-Public Use
  Company Number: US-013037

PATIENT
  Sex: Female

DRUGS (4)
  1. PICO-SALAX [Suspect]
     Indication: BOWEL PREPARATION
     Dosage: 1ST DOSE AT 1630; 2ND DOSE AT APPROXIMATELY 2130 OR 2145?
  2. METFORMIN [Concomitant]
  3. ASPIRIN [Concomitant]
  4. VITAMINS [Concomitant]

REACTIONS (1)
  - Drug ineffective [None]
